FAERS Safety Report 26134732 (Version 1)
Quarter: 2025Q4

REPORT INFORMATION
  Report Type: Spontaneous
  Country: US (occurrence: US)
  Receive Date: 20251209
  Receipt Date: 20251209
  Transmission Date: 20260118
  Serious: No
  Sender: MERCK SHARP & DOHME LLC
  Company Number: US-009507513-2356945

PATIENT
  Sex: Female
  Weight: 84.8 kg

DRUGS (30)
  1. WINREVAIR [Suspect]
     Active Substance: SOTATERCEPT-CSRK
     Indication: Product used for unknown indication
     Dates: start: 2025
  2. WINREVAIR [Suspect]
     Active Substance: SOTATERCEPT-CSRK
     Dosage: DOSE WAS DECREASED
     Dates: start: 2025
  3. WINREVAIR [Suspect]
     Active Substance: SOTATERCEPT-CSRK
  4. WINREVAIR [Suspect]
     Active Substance: SOTATERCEPT-CSRK
  5. ORENITRAM [Suspect]
     Active Substance: TREPROSTINIL
     Indication: Pulmonary arterial hypertension
     Dosage: TIME INTERVAL: 0.33333333 DAYS: 2.5 MG, TID, ORAL USE
     Route: 048
     Dates: start: 20250317
  6. MINERALS\VITAMINS [Concomitant]
     Active Substance: MINERALS\VITAMINS
  7. FUROSEMIDE [Concomitant]
     Active Substance: FUROSEMIDE
  8. ZOCOR [Concomitant]
     Active Substance: SIMVASTATIN
  9. SINGULAIR [Concomitant]
     Active Substance: MONTELUKAST SODIUM
  10. SODIUM CHLORIDE [Concomitant]
     Active Substance: SODIUM CHLORIDE
  11. KERENDIA [Concomitant]
     Active Substance: FINERENONE
     Dates: start: 2025
  12. FLONASE ALLERGY RELIEF [Concomitant]
     Active Substance: FLUTICASONE PROPIONATE
  13. SUCRALFATE [Concomitant]
     Active Substance: SUCRALFATE
  14. SILDENAFIL CITRATE [Concomitant]
     Active Substance: SILDENAFIL CITRATE
  15. ALLOPURINOL [Concomitant]
     Active Substance: ALLOPURINOL
  16. OPSUMIT [Concomitant]
     Active Substance: MACITENTAN
  17. TRAMADOL HCL [Concomitant]
     Active Substance: TRAMADOL HYDROCHLORIDE
  18. DIETARY SUPPLEMENT\HERBALS\MILK THISTLE [Concomitant]
     Active Substance: MILK THISTLE
  19. ZETIA [Concomitant]
     Active Substance: EZETIMIBE
  20. CLARITIN [Concomitant]
     Active Substance: LORATADINE
  21. Beet root [Concomitant]
  22. Tart cherry [Concomitant]
  23. VITAMINS [Concomitant]
     Active Substance: VITAMINS
  24. ACIDOPHILUS [Concomitant]
     Active Substance: LACTOBACILLUS ACIDOPHILUS
  25. OXYGEN [Concomitant]
     Active Substance: OXYGEN
  26. TYLENOL EXTRA STRENGTH [Concomitant]
     Active Substance: ACETAMINOPHEN
  27. MURO 128 [Concomitant]
     Active Substance: SODIUM CHLORIDE
  28. LOPERAMIDE [Concomitant]
     Active Substance: LOPERAMIDE
  29. LOSARTAN POTASSIUM [Concomitant]
     Active Substance: LOSARTAN POTASSIUM
  30. OZEMPIC [Concomitant]
     Active Substance: SEMAGLUTIDE

REACTIONS (1)
  - Haemoglobin increased [Unknown]

NARRATIVE: CASE EVENT DATE: 20250101
